FAERS Safety Report 11863468 (Version 9)
Quarter: 2016Q3

REPORT INFORMATION
  Report Type: Spontaneous
  Country: GB (occurrence: GB)
  Receive Date: 20151223
  Receipt Date: 20160701
  Transmission Date: 20161109
  Serious: Yes (Hospitalization, Other)
  Sender: FDA-Public Use
  Company Number: GB-DRREDDYS-GER/UKI/15/0054792

PATIENT
  Age: 53 Year
  Sex: Female

DRUGS (9)
  1. GEMCITABINE [Suspect]
     Active Substance: GEMCITABINE\GEMCITABINE HYDROCHLORIDE
     Indication: PRODUCT USED FOR UNKNOWN INDICATION
     Dosage: CYCLE 10
     Route: 065
  2. HERCEPTIN [Suspect]
     Active Substance: TRASTUZUMAB
     Route: 058
  3. CHLORHEXIDINE [Suspect]
     Active Substance: CHLORHEXIDINE
     Indication: PRODUCT USED FOR UNKNOWN INDICATION
     Route: 065
  4. DEXAMETHASONE. [Concomitant]
     Active Substance: DEXAMETHASONE
     Indication: PRODUCT USED FOR UNKNOWN INDICATION
  5. NEULASTA [Concomitant]
     Active Substance: PEGFILGRASTIM
     Indication: PRODUCT USED FOR UNKNOWN INDICATION
  6. VINORELBINE [Concomitant]
     Active Substance: VINORELBINE\VINORELBINE TARTRATE
     Indication: PRODUCT USED FOR UNKNOWN INDICATION
     Route: 048
  7. CARBOPLATIN. [Suspect]
     Active Substance: CARBOPLATIN
     Indication: PRODUCT USED FOR UNKNOWN INDICATION
     Dosage: CYCLE 10
     Route: 065
  8. HERCEPTIN [Suspect]
     Active Substance: TRASTUZUMAB
     Indication: PRODUCT USED FOR UNKNOWN INDICATION
     Route: 058
  9. GRANISETRON [Concomitant]
     Active Substance: GRANISETRON
     Indication: PRODUCT USED FOR UNKNOWN INDICATION

REACTIONS (30)
  - Wound [Recovering/Resolving]
  - Neuropathy peripheral [Unknown]
  - Musculoskeletal disorder [Unknown]
  - Dysphonia [Unknown]
  - Hypokinesia [Unknown]
  - Dyspnoea exertional [Unknown]
  - Pyrexia [Unknown]
  - Wound haemorrhage [Unknown]
  - Pain in extremity [Recovering/Resolving]
  - Paraesthesia [Unknown]
  - Haemoglobin decreased [Not Recovered/Not Resolved]
  - Nausea [Unknown]
  - Fatigue [Not Recovered/Not Resolved]
  - Diarrhoea [Recovering/Resolving]
  - Oedema [Unknown]
  - Cough [Unknown]
  - Anaemia [Not Recovered/Not Resolved]
  - Vomiting [Unknown]
  - Blood creatinine increased [Unknown]
  - Hyperaesthesia [Unknown]
  - Rhinorrhoea [Unknown]
  - Limb discomfort [Unknown]
  - Sensory loss [Unknown]
  - Breast cancer metastatic [Unknown]
  - Lymphoedema [Unknown]
  - Wound secretion [Unknown]
  - Dysgeusia [Unknown]
  - Allergy to chemicals [Unknown]
  - Neuralgia [Unknown]
  - Constipation [Unknown]

NARRATIVE: CASE EVENT DATE: 20160509
